FAERS Safety Report 8223050-6 (Version None)
Quarter: 2012Q1

REPORT INFORMATION
  Report Type: 
  Country: None (occurrence: None)
  Receive Date: 20120321
  Receipt Date: 20120309
  Transmission Date: 20120608
  Serious: Yes (Hospitalization, Other)
  Sender: FDA-Public Use
  Company Number: JP-BRISTOL-MYERS SQUIBB COMPANY-16383275

PATIENT
  Age: 60 Year
  Sex: Male

DRUGS (7)
  1. ALLOPURINOL [Concomitant]
  2. SITAGLIPTIN PHOSPHATE [Concomitant]
  3. METFORMIN HCL [Suspect]
     Indication: DIABETES MELLITUS
     Route: 048
     Dates: start: 20110701, end: 20111224
  4. ACTOS [Concomitant]
  5. PRAVASTATIN SODIUM [Concomitant]
  6. HUMALOG [Concomitant]
     Dosage: HUMALOG MIX
  7. GLYBURIDE [Concomitant]

REACTIONS (1)
  - RASH [None]
